FAERS Safety Report 24897716 (Version 1)
Quarter: 2025Q1

REPORT INFORMATION
  Report Type: Spontaneous
  Country: BR (occurrence: BR)
  Receive Date: 20250129
  Receipt Date: 20250129
  Transmission Date: 20250409
  Serious: Yes (Other)
  Sender: Haleon PLC
  Company Number: BR-KENVUE-20241030208

PATIENT
  Sex: Female

DRUGS (2)
  1. NICORETTE [Suspect]
     Active Substance: NICOTINE
     Indication: Smoking cessation therapy
     Route: 048
  2. NICORETTE [Suspect]
     Active Substance: NICOTINE
     Indication: Electronic cigarette user

REACTIONS (9)
  - Drug dependence [Unknown]
  - Jaw disorder [Unknown]
  - Product use in unapproved indication [Unknown]
  - Weight decreased [Unknown]
  - Osteitis [Unknown]
  - Deformity [Unknown]
  - Muscle hypertrophy [Unknown]
  - Incorrect product administration duration [Unknown]
  - Bruxism [Unknown]
